FAERS Safety Report 23577235 (Version 1)
Quarter: 2024Q1

REPORT INFORMATION
  Report Type: Spontaneous
  Country: TR (occurrence: TR)
  Receive Date: 20240228
  Receipt Date: 20240228
  Transmission Date: 20240409
  Serious: Yes (Life-Threatening)
  Sender: FDA-Public Use
  Company Number: TR-002147023-NVSC2024TR041285

PATIENT
  Sex: Male

DRUGS (1)
  1. RIBOCICLIB [Suspect]
     Active Substance: RIBOCICLIB
     Indication: Breast cancer
     Dosage: UNK
     Route: 065

REACTIONS (4)
  - Breast cancer [Unknown]
  - Malignant neoplasm progression [Unknown]
  - Product dose omission issue [Unknown]
  - Off label use [Unknown]
